FAERS Safety Report 5052401-9 (Version None)
Quarter: 2006Q3

REPORT INFORMATION
  Report Type: 
  Country: None (occurrence: None)
  Receive Date: 20060717
  Receipt Date: 20060706
  Transmission Date: 20061208
  Serious: Yes (Other)
  Sender: FDA-Public Use
  Company Number: PHNU2006DE02469

PATIENT
  Age: 42 Year
  Sex: Male

DRUGS (3)
  1. TRILEPTAL [Suspect]
     Indication: BIPOLAR DISORDER
     Dosage: 150 MG, BID
     Dates: start: 20060601, end: 20060630
  2. FLUANXOL - SLOW RELEASE [Concomitant]
  3. SOLIAN [Concomitant]
     Dosage: 400 MG/D

REACTIONS (1)
  - DEPRESSION [None]
